FAERS Safety Report 7669207-4 (Version None)
Quarter: 2011Q3

REPORT INFORMATION
  Report Type: 
  Country: None (occurrence: None)
  Receive Date: 20110808
  Receipt Date: 20110727
  Transmission Date: 20111222
  Serious: Yes (Other)
  Sender: FDA-Public Use
  Company Number: PHHY2011JP69324

PATIENT
  Sex: Female

DRUGS (2)
  1. CLONAZEPAM [Concomitant]
     Dosage: 2 MG, UNK
  2. CARBAMAZEPINE [Suspect]
     Indication: EPILEPSY
     Dosage: 400 MG

REACTIONS (2)
  - ABORTION SPONTANEOUS [None]
  - MATERNAL EXPOSURE DURING PREGNANCY [None]
